FAERS Safety Report 8791218 (Version 1)
Quarter: 2012Q4

REPORT INFORMATION
  Report Type: Spontaneous
  Country: JP (occurrence: None)
  Receive Date: 20120911
  Receipt Date: 20120911
  Transmission Date: 20130627
  Serious: Yes (Other)
  Sender: FDA-Public Use
  Company Number: DSA_59390_2012

PATIENT
  Age: 72 Year
  Sex: Male

DRUGS (9)
  1. DILTIAZEM HYDROCHLORIDE [Suspect]
     Indication: HYPERTENSION
     Dosage: 300 mg/m2
     Route: 051
     Dates: start: 20110115, end: 20110116
  2. RADICUT [Suspect]
     Dosage: (df, daily intravenous drip)
     Route: 041
     Dates: start: 20110115, end: 20110116
  3. GRTPA [Suspect]
     Dosage: (df, daily intravenous (not otherwise specified)
     Dates: start: 20110115, end: 20110115
  4. GASTER [Suspect]
     Dosage: (DF)
  5. PERDIPINE [Concomitant]
  6. HEPARIN SODIUM [Concomitant]
  7. UNASYN /00917901/ [Concomitant]
  8. OTHER ANTIHYPERTENSIVES [Concomitant]
  9. GLYCEOL /00744501/ [Concomitant]

REACTIONS (6)
  - Cerebral infarction [None]
  - Neurological symptom [None]
  - Haemorrhagic infarction [None]
  - Hepatic function abnormal [None]
  - Haemorrhage intracranial [None]
  - Embolic stroke [None]
